FAERS Safety Report 20160154 (Version 1)
Quarter: 2021Q4

REPORT INFORMATION
  Report Type: Spontaneous
  Country: US (occurrence: US)
  Receive Date: 20211208
  Receipt Date: 20211208
  Transmission Date: 20220303
  Serious: No
  Sender: FDA-Public Use
  Company Number: US-STRIDES ARCOLAB LIMITED-2021SP029558

PATIENT
  Age: 61 Year
  Sex: Male

DRUGS (9)
  1. IBUPROFEN [Suspect]
     Active Substance: IBUPROFEN
     Indication: Drug withdrawal syndrome
     Dosage: 600 MILLIGRAM, UNK
     Route: 065
  2. CLONIDINE [Concomitant]
     Active Substance: CLONIDINE
     Indication: Drug use disorder
     Dosage: 0.1 MILLIGRAM, UNK
     Route: 065
  3. CLONIDINE [Concomitant]
     Active Substance: CLONIDINE
     Indication: Drug withdrawal syndrome
     Dosage: UNK
     Route: 065
  4. CLONIDINE [Concomitant]
     Active Substance: CLONIDINE
     Dosage: 0.1 MILLIGRAM, EVERY 6 HRS
     Route: 065
  5. OXAZEPAM [Concomitant]
     Active Substance: OXAZEPAM
     Indication: Drug withdrawal syndrome
     Dosage: 15 MILLIGRAM, UNK
     Route: 065
  6. OXAZEPAM [Concomitant]
     Active Substance: OXAZEPAM
     Dosage: UNK (A DOSE OF OXAZEPAM)
     Route: 065
  7. LEDIPASVIR\SOFOSBUVIR [Concomitant]
     Active Substance: LEDIPASVIR\SOFOSBUVIR
     Indication: Hepatitis C
     Dosage: UNK
     Route: 065
  8. HEROIN [Concomitant]
     Active Substance: DIAMORPHINE
     Indication: Product used for unknown indication
     Dosage: UNK
     Route: 065
  9. FENTANYL [Concomitant]
     Active Substance: FENTANYL
     Indication: Product used for unknown indication
     Dosage: UNK
     Route: 065

REACTIONS (1)
  - Off label use [Unknown]
